FAERS Safety Report 6472113-4 (Version None)
Quarter: 2009Q4

REPORT INFORMATION
  Report Type: 
  Country: None (occurrence: None)
  Receive Date: 20091203
  Receipt Date: 20080618
  Transmission Date: 20100525
  Serious: Yes (Other)
  Sender: FDA-Public Use
  Company Number: US-ELI_LILLY_AND_COMPANY-US200804000901

PATIENT
  Sex: Female
  Weight: 91.882 kg

DRUGS (8)
  1. BYETTA [Suspect]
     Indication: TYPE 2 DIABETES MELLITUS
     Dosage: 5 UG, 2/D
     Route: 058
     Dates: start: 20060701, end: 20060801
  2. BYETTA [Suspect]
     Dosage: 10 UG, 2/D
     Route: 058
     Dates: start: 20060801, end: 20071001
  3. BYETTA [Suspect]
     Dosage: 5 UG, 2/D
     Route: 058
     Dates: start: 20071001, end: 20080330
  4. VYTORIN [Concomitant]
     Indication: BLOOD CHOLESTEROL INCREASED
     Dosage: UNK, UNKNOWN
     Route: 048
  5. LEVOTHYROXINE SODIUM [Concomitant]
     Indication: HYPOTHYROIDISM
     Dosage: 0.05 MG, UNKNOWN
     Route: 048
  6. PROZAC [Concomitant]
     Indication: ANXIETY
     Dosage: 10 MG, UNKNOWN
     Route: 048
     Dates: start: 20070101
  7. WELLBUTRIN [Concomitant]
     Indication: DEPRESSION
     Dosage: 150 MG, 2/D
     Route: 048
     Dates: start: 20070101
  8. METFORMIN HCL [Concomitant]
     Dosage: UNK, UNKNOWN
     Route: 048
     Dates: end: 20080330

REACTIONS (6)
  - ABDOMINAL PAIN [None]
  - CONSTIPATION [None]
  - DIARRHOEA [None]
  - NAUSEA [None]
  - PANCREATITIS [None]
  - WEIGHT DECREASED [None]
